FAERS Safety Report 9203155 (Version 1)
Quarter: 2013Q1

REPORT INFORMATION
  Report Type: Spontaneous
  Country: US (occurrence: None)
  Receive Date: 20130329
  Receipt Date: 20130329
  Transmission Date: 20140127
  Serious: Yes (Death)
  Sender: FDA-Public Use
  Company Number: SYM-2013-02105

PATIENT
  Age: 52 Year
  Sex: Female

DRUGS (1)
  1. XENAZINE (TETRABENAZINE) (TABLETS) (TETRABENAZINE) [Suspect]
     Indication: HUNTINGTON^S DISEASE
     Dosage: 25 MG, 1 IN MORNING, ORAL
     Dates: start: 20101119, end: 20130320

REACTIONS (1)
  - Death [None]
